FAERS Safety Report 6099333-5 (Version None)
Quarter: 2009Q1

REPORT INFORMATION
  Report Type: 
  Country: None (occurrence: None)
  Receive Date: 20090226
  Receipt Date: 20090226
  Transmission Date: 20090719
  Serious: Yes (Hospitalization)
  Sender: FDA-Public Use
  Company Number: None

PATIENT
  Age: 67 Year
  Sex: Male
  Weight: 78 kg

DRUGS (1)
  1. WARFARIN SODIUM [Suspect]
     Indication: PULMONARY EMBOLISM
     Dosage: PO
     Route: 048
     Dates: start: 20081110, end: 20090114

REACTIONS (3)
  - FALL [None]
  - HAEMORRHAGE [None]
  - MENTAL STATUS CHANGES [None]
